FAERS Safety Report 23499145 (Version 3)
Quarter: 2024Q2

REPORT INFORMATION
  Report Type: Report from Study
  Country: US (occurrence: US)
  Receive Date: 20240208
  Receipt Date: 20240511
  Transmission Date: 20240716
  Serious: Yes (Other)
  Sender: FDA-Public Use
  Company Number: US-ABBVIE-5529354

PATIENT
  Sex: Male

DRUGS (3)
  1. SKYRIZI [Suspect]
     Active Substance: RISANKIZUMAB-RZAA
     Indication: Psoriasis
     Dosage: SKYRIZI / RISANKIZUMAB 150 MG/ML SD PEN 1^S.
     Route: 058
     Dates: start: 20221221, end: 202310
  2. SKYRIZI [Suspect]
     Active Substance: RISANKIZUMAB-RZAA
     Dosage: SKYRIZI / RISANKIZUMAB 150 MG/ML SD PEN 1^S.
     Route: 058
     Dates: start: 20240118
  3. SKYRIZI [Suspect]
     Active Substance: RISANKIZUMAB-RZAA
     Dosage: SKYRIZI / RISANKIZUMAB 150 MG/ML SD PEN 1^S.
     Route: 058
     Dates: start: 20230117

REACTIONS (1)
  - Osteoarthritis [Recovered/Resolved]
